FAERS Safety Report 9905101 (Version 1)
Quarter: 2013Q2

REPORT INFORMATION
  Report Type: Spontaneous
  Country: US (occurrence: None)
  Receive Date: 20130305
  Receipt Date: 20130305
  Transmission Date: 20140414
  Serious: Yes (Hospitalization)
  Sender: FDA-Public Use
  Company Number: 163-21880-12041938

PATIENT
  Age: 51 Year
  Sex: Female

DRUGS (1)
  1. REVLIMID (LENALIDOMIDE) (25 MILLIGRAM, CAPSULES) [Suspect]
     Route: 048
     Dates: start: 20110131, end: 20110621

REACTIONS (2)
  - Plasma cell leukaemia [None]
  - Pancytopenia [None]
